FAERS Safety Report 15089839 (Version 2)
Quarter: 2018Q3

REPORT INFORMATION
  Report Type: Report from Study
  Country: US (occurrence: US)
  Receive Date: 20180629
  Receipt Date: 20180706
  Transmission Date: 20181010
  Serious: Yes (Hospitalization, Other)
  Sender: FDA-Public Use
  Company Number: US-GILEAD-2018-0347365

PATIENT
  Age: 53 Year
  Sex: Female

DRUGS (1)
  1. RANOLAZINE. [Suspect]
     Active Substance: RANOLAZINE
     Indication: ANGINA PECTORIS
     Dosage: 500 MG, BID
     Route: 048
     Dates: start: 201703, end: 20180618

REACTIONS (4)
  - Hypertension [Unknown]
  - Intentional dose omission [Not Recovered/Not Resolved]
  - Angina pectoris [Unknown]
  - Angina pectoris [Unknown]

NARRATIVE: CASE EVENT DATE: 20180614
